FAERS Safety Report 6218780-1 (Version None)
Quarter: 2009Q2

REPORT INFORMATION
  Report Type: 
  Country: None (occurrence: None)
  Receive Date: 20090608
  Receipt Date: 20090525
  Transmission Date: 20091009
  Serious: Yes (Death, Other)
  Sender: FDA-Public Use
  Company Number: SE-ELI_LILLY_AND_COMPANY-SE200905005594

PATIENT
  Age: 65 Year
  Sex: Female

DRUGS (5)
  1. ZYPREXA [Suspect]
     Indication: SCHIZOPHRENIA
     Dosage: 10 MG, DAILY (1/D)
     Route: 048
     Dates: start: 19981109, end: 19981109
  2. ZYPREXA [Suspect]
     Dosage: 10 MG, 2/D
     Route: 048
     Dates: start: 19981110, end: 19981115
  3. LORAZEPAM [Concomitant]
     Dosage: 4 MG, DAILY (1/D)
  4. IMOVANE [Concomitant]
     Dosage: 7.5 MG, UNK
  5. PROPAVAN [Concomitant]
     Dosage: 50 MG, UNK

REACTIONS (10)
  - ACUTE MYOCARDIAL INFARCTION [None]
  - AGITATION [None]
  - ATRIAL FIBRILLATION [None]
  - CARDIOMEGALY [None]
  - DEATH [None]
  - DELIRIUM [None]
  - DISEASE RECURRENCE [None]
  - DISTURBANCE IN ATTENTION [None]
  - HEPATIC STEATOSIS [None]
  - PULMONARY OEDEMA [None]
